FAERS Safety Report 19910774 (Version 1)
Quarter: 2021Q4

REPORT INFORMATION
  Report Type: Spontaneous
  Country: US (occurrence: US)
  Receive Date: 20211004
  Receipt Date: 20211004
  Transmission Date: 20220303
  Serious: No
  Sender: FDA-Public Use
  Company Number: US-DRREDDYS-SPO/USA/21/0142309

PATIENT
  Age: 24 Year
  Sex: Female

DRUGS (1)
  1. ACCUTANE [Suspect]
     Active Substance: ISOTRETINOIN
     Indication: Product used for unknown indication
     Dosage: RMA ISSUE DATE:8 JUNE 2021 12:00:00 AM,9 JULY 2021 12:00:00 AM,4 AUGUST 2021 12:00:00 AM,1 SEPTEMBER

REACTIONS (2)
  - Myalgia [Unknown]
  - Arthralgia [Unknown]
